FAERS Safety Report 11891034 (Version 1)
Quarter: 2016Q1

REPORT INFORMATION
  Report Type: Spontaneous
  Country: US (occurrence: US)
  Receive Date: 20160106
  Receipt Date: 20160106
  Transmission Date: 20160526
  Serious: Yes (Other)
  Sender: FDA-Public Use
  Company Number: US-BEH-2015057453

PATIENT
  Age: 4 Year
  Sex: Female

DRUGS (2)
  1. INTRAVENOUS IMMUNOGLOBULIN [Suspect]
     Active Substance: HUMAN IMMUNOGLOBULIN G
     Indication: KAWASAKI^S DISEASE
     Route: 042
  2. ASPIRIN. [Suspect]
     Active Substance: ASPIRIN
     Indication: KAWASAKI^S DISEASE
     Dosage: HIGH DOSE

REACTIONS (9)
  - Hepatic enzyme increased [Unknown]
  - Extravascular haemolysis [Unknown]
  - Leukocytosis [Unknown]
  - Drug ineffective [Unknown]
  - Haptoglobin increased [Unknown]
  - Haemoglobin decreased [Unknown]
  - Blood bilirubin increased [Unknown]
  - Thrombocytosis [Unknown]
  - Reticulocyte count increased [Unknown]
